FAERS Safety Report 4981018-7 (Version None)
Quarter: 2006Q2

REPORT INFORMATION
  Report Type: 
  Country: None (occurrence: None)
  Receive Date: 20060424
  Receipt Date: 20060419
  Transmission Date: 20061013
  Serious: Yes (Hospitalization)
  Sender: FDA-Public Use
  Company Number: US-GLAXOSMITHKLINE-A0602708A

PATIENT
  Age: 40 Year
  Sex: Male

DRUGS (1)
  1. BEXXAR [Suspect]
     Indication: LYMPHOMA
     Route: 065

REACTIONS (5)
  - BILE DUCT OBSTRUCTION [None]
  - HEPATITIS [None]
  - HYPERBILIRUBINAEMIA [None]
  - JAUNDICE CHOLESTATIC [None]
  - LYMPHADENOPATHY [None]
